FAERS Safety Report 5893506-X (Version None)
Quarter: 2008Q3

REPORT INFORMATION
  Report Type: 
  Country: None (occurrence: None)
  Receive Date: 20080923
  Receipt Date: 20080916
  Transmission Date: 20090109
  Serious: Yes (Hospitalization)
  Sender: FDA-Public Use
  Company Number: JP-ABBOTT-07P-087-0363078-00

PATIENT
  Sex: Male

DRUGS (3)
  1. LEUPROLIDE ACETATE [Suspect]
     Indication: PROSTATE CANCER STAGE III
     Route: 058
     Dates: start: 20060925
  2. BICALUTAMIDE [Suspect]
     Indication: PROSTATE CANCER STAGE III
     Route: 048
     Dates: start: 20060918, end: 20061023
  3. BICALUTAMIDE [Suspect]
     Route: 048
     Dates: start: 20070309

REACTIONS (1)
  - CEREBRAL INFARCTION [None]
